FAERS Safety Report 21996199 (Version 1)
Quarter: 2023Q1

REPORT INFORMATION
  Report Type: Spontaneous
  Country: US (occurrence: None)
  Receive Date: 20230214
  Receipt Date: 20230214
  Transmission Date: 20230417
  Serious: Yes (Hospitalization)
  Sender: FDA-Public Use
  Company Number: None

PATIENT
  Age: 61 Year
  Sex: Female
  Weight: 62.6 kg

DRUGS (12)
  1. CAPECITABINE [Suspect]
     Active Substance: CAPECITABINE
     Indication: Rectal cancer
     Dosage: FREQUENCY : TWICE A DAY;?
     Route: 048
  2. DIBUCAINE [Concomitant]
  3. GABAPENTIN [Concomitant]
  4. NORCO [Concomitant]
  5. LIFE VANTAGE [Concomitant]
  6. LOMOTIL [Concomitant]
  7. LOSARTAN [Concomitant]
  8. ONDANSETRON [Concomitant]
  9. PANTOPRAZOLE [Concomitant]
  10. PROCHLORPERAZINE [Concomitant]
  11. PROCTOFOAM [Concomitant]
  12. VALACYCLOVIR [Concomitant]

REACTIONS (1)
  - Disease progression [None]
